FAERS Safety Report 20359304 (Version 1)
Quarter: 2022Q1

REPORT INFORMATION
  Report Type: Spontaneous
  Country: US (occurrence: US)
  Receive Date: 20220121
  Receipt Date: 20220121
  Transmission Date: 20220423
  Serious: No
  Sender: FDA-Public Use
  Company Number: US-GLAXOSMITHKLINE-US2022009163

PATIENT
  Sex: Female

DRUGS (1)
  1. BENLYSTA [Suspect]
     Active Substance: BELIMUMAB
     Indication: Connective tissue disorder
     Dosage: 200 MG
     Route: 042

REACTIONS (2)
  - Intentional dose omission [Unknown]
  - Product use in unapproved indication [Unknown]
